FAERS Safety Report 9856126 (Version 1)
Quarter: 2014Q1

REPORT INFORMATION
  Report Type: Report from Study
  Country: PE (occurrence: PE)
  Receive Date: 20140130
  Receipt Date: 20140130
  Transmission Date: 20141002
  Serious: Yes (Death)
  Sender: FDA-Public Use
  Company Number: PE-ASTRAZENECA-2014SE05791

PATIENT
  Age: 32135 Day
  Sex: Female

DRUGS (1)
  1. BETALOC ZOK [Suspect]
     Route: 048
     Dates: start: 20091004, end: 20131127

REACTIONS (1)
  - Death [Fatal]
